FAERS Safety Report 8859264 (Version 1)
Quarter: 2012Q4

REPORT INFORMATION
  Report Type: 
  Country: US (occurrence: US)
  Receive Date: 20121024
  Receipt Date: 20121024
  Transmission Date: 20130627
  Serious: Yes (Death)
  Sender: FDA-Public Use
  Company Number: US-ROCHE-1133473

PATIENT
  Age: 55 Year
  Sex: Female

DRUGS (5)
  1. RAPTIVA [Suspect]
     Indication: PSORIASIS
     Route: 058
     Dates: start: 20070907
  2. RAPTIVA [Suspect]
     Indication: PUSTULAR PSORIASIS
     Route: 058
  3. FLUOCINONIDE [Concomitant]
  4. LISINOPRIL [Concomitant]
  5. LASIX [Concomitant]

REACTIONS (6)
  - Death [Fatal]
  - Pruritus [Unknown]
  - Chills [Unknown]
  - Nausea [Unknown]
  - Rash [Recovered/Resolved]
  - Alopecia [Unknown]
